FAERS Safety Report 11368169 (Version 1)
Quarter: 2015Q3

REPORT INFORMATION
  Report Type: Spontaneous
  Country: IT (occurrence: None)
  Receive Date: 20150810
  Receipt Date: 20150810
  Transmission Date: 20151125
  Serious: Yes (Other)
  Sender: FDA-Public Use
  Company Number: ADR-2015-01487

PATIENT
  Age: 15 Year
  Sex: Male

DRUGS (2)
  1. BACLOFEN INTRATHECAL [Suspect]
     Active Substance: BACLOFEN
     Indication: MUSCLE SPASTICITY
  2. BACLOFEN (ORAL) [Suspect]
     Active Substance: BACLOFEN
     Indication: MUSCLE SPASTICITY

REACTIONS (7)
  - Seizure [None]
  - Asthenia [None]
  - Quadriplegia [None]
  - Pyrexia [None]
  - Bronchiolitis [None]
  - Implant site abscess [None]
  - Mental retardation [None]

NARRATIVE: CASE EVENT DATE: 20150430
